FAERS Safety Report 5347819-0 (Version None)
Quarter: 2007Q2

REPORT INFORMATION
  Report Type: 
  Country: None (occurrence: None)
  Receive Date: 20070516
  Receipt Date: 20060925
  Transmission Date: 20071010
  Serious: No
  Sender: FDA-Public Use
  Company Number: E2090-00100-SPO-US

PATIENT
  Age: 19 Year
  Sex: Male

DRUGS (4)
  1. ZONEGRAN [Suspect]
     Indication: CONVULSION
     Dosage: 50 MG, 1 IN 1 D, ORAL
     Route: 048
     Dates: start: 20060922, end: 20060922
  2. DEPAKOTE [Concomitant]
  3. SEROQUEL [Concomitant]
  4. CONCERTA [Concomitant]

REACTIONS (2)
  - HALLUCINATION [None]
  - STATUS EPILEPTICUS [None]
